FAERS Safety Report 8978096 (Version 1)
Quarter: 2012Q4

REPORT INFORMATION
  Report Type: 
  Country: FR (occurrence: FR)
  Receive Date: 20121221
  Receipt Date: 20121221
  Transmission Date: 20130627
  Serious: Yes (Death)
  Sender: FDA-Public Use
  Company Number: FR-CELGENEUS-056-21880-12121806

PATIENT
  Age: 50 Year
  Sex: Male

DRUGS (1)
  1. REVLIMID [Suspect]
     Indication: B-CELL LYMPHOMA NOS
     Dosage: 15 Milligram
     Route: 048
     Dates: start: 20100929, end: 20101012

REACTIONS (2)
  - Bone marrow failure [Fatal]
  - Subarachnoid haemorrhage [Fatal]
